FAERS Safety Report 8970346 (Version 1)
Quarter: 2012Q4

REPORT INFORMATION
  Report Type: 
  Country: US (occurrence: US)
  Receive Date: 20121218
  Receipt Date: 20121218
  Transmission Date: 20130627
  Serious: No
  Sender: FDA-Public Use
  Company Number: US-BRISTOL-MYERS SQUIBB COMPANY-17046822

PATIENT
  Age: 57 Year
  Sex: Female

DRUGS (2)
  1. ABILIFY [Suspect]
     Dosage: duration :6 months-1 year
  2. TOPAMAX [Concomitant]

REACTIONS (1)
  - Tardive dyskinesia [Unknown]
